FAERS Safety Report 23783228 (Version 1)
Quarter: 2024Q2

REPORT INFORMATION
  Report Type: Spontaneous
  Country: US (occurrence: US)
  Receive Date: 20240425
  Receipt Date: 20240425
  Transmission Date: 20240716
  Serious: Yes (Hospitalization, Other)
  Sender: FDA-Public Use
  Company Number: US-PFIZER INC-PV202400049308

PATIENT
  Age: 44 Year
  Sex: Male

DRUGS (1)
  1. TESTOSTERONE CYPIONATE [Suspect]
     Active Substance: TESTOSTERONE CYPIONATE
     Dosage: 200 MG (DEPOT) FOR THE LAST 5 YEARS
     Route: 030

REACTIONS (4)
  - Pulmonary embolism [Recovering/Resolving]
  - Left ventricular failure [Recovering/Resolving]
  - Pulmonary hypertension [Recovering/Resolving]
  - Blood testosterone increased [Recovering/Resolving]
